FAERS Safety Report 13104350 (Version 1)
Quarter: 2017Q1

REPORT INFORMATION
  Report Type: Spontaneous
  Country: FR (occurrence: FR)
  Receive Date: 20170111
  Receipt Date: 20170111
  Transmission Date: 20170428
  Serious: Yes (Hospitalization)
  Sender: FDA-Public Use
  Company Number: FR-AUROBINDO-AUR-APL-2017-00160

PATIENT
  Age: 51 Year
  Sex: Male

DRUGS (2)
  1. AMOXICILLINE RANBAXY [Suspect]
     Active Substance: AMOXICILLIN
     Indication: TOOTH INFECTION
     Dosage: 1 DF, ONCE A DAY
     Route: 048
     Dates: start: 20161115, end: 20161115
  2. IBUPROFEN ARROW FILM-COATED TABLET 400 MG [Suspect]
     Active Substance: IBUPROFEN
     Indication: TOOTH INFECTION
     Dosage: 1 DF, ONCE A DAY
     Route: 048
     Dates: start: 20161115, end: 20161115

REACTIONS (11)
  - Anaphylactic shock [Recovered/Resolved]
  - Diarrhoea [None]
  - Pruritus [Recovered/Resolved]
  - Nausea [Recovered/Resolved]
  - Malaise [Recovered/Resolved]
  - Loss of consciousness [Recovered/Resolved]
  - Type I hypersensitivity [Recovered/Resolved]
  - Radial pulse abnormal [Recovered/Resolved]
  - Vomiting [Recovered/Resolved]
  - Erythema [Recovered/Resolved]
  - Abdominal pain upper [None]

NARRATIVE: CASE EVENT DATE: 20161115
